FAERS Safety Report 15928471 (Version 1)
Quarter: 2019Q1

REPORT INFORMATION
  Report Type: Spontaneous
  Country: ES (occurrence: ES)
  Receive Date: 20190206
  Receipt Date: 20190206
  Transmission Date: 20190417
  Serious: Yes (Other)
  Sender: FDA-Public Use
  Company Number: ES-TOLMAR, INC.-TOLG20190041

PATIENT
  Age: 68 Year
  Sex: Male

DRUGS (1)
  1. IMIQUIMOD. [Suspect]
     Active Substance: IMIQUIMOD
     Indication: SKIN LESION
     Dosage: UNKNOWN
     Route: 061

REACTIONS (9)
  - Lupus-like syndrome [Recovering/Resolving]
  - Erythema [Recovering/Resolving]
  - Pruritus [Recovering/Resolving]
  - Actinic keratosis [Recovering/Resolving]
  - Skin exfoliation [Recovering/Resolving]
  - Skin plaque [Recovering/Resolving]
  - Skin atrophy [Recovering/Resolving]
  - Burning sensation [Recovering/Resolving]
  - Telangiectasia [Recovering/Resolving]
